FAERS Safety Report 8118740-X (Version None)
Quarter: 2012Q1

REPORT INFORMATION
  Report Type: 
  Country: None (occurrence: None)
  Receive Date: 20120202
  Receipt Date: 20120125
  Transmission Date: 20120608
  Serious: Yes (Death)
  Sender: FDA-Public Use
  Company Number: 2012MA001197

PATIENT
  Age: 78 Year
  Sex: Female

DRUGS (9)
  1. CETIRIZINE [Concomitant]
  2. CARBAMAZEPINE [Suspect]
     Indication: RESTLESS LEGS SYNDROME
     Dosage: 100 MG;QD
  3. CARBAMAZEPINE [Suspect]
     Indication: RESTING TREMOR
     Dosage: 100 MG;QD
  4. CILOSTAZOL [Suspect]
     Dosage: 100 MG
  5. METHYLPHENIDATE [Concomitant]
  6. SULPIRIDE [Concomitant]
  7. DEFLAZACORT [Concomitant]
  8. OMEPRAZOLE [Suspect]
     Dosage: 20 MG;QD
  9. HYDROXYZINE [Concomitant]

REACTIONS (15)
  - ACINETOBACTER TEST POSITIVE [None]
  - SEPTIC SHOCK [None]
  - DRUG INTERACTION [None]
  - PYREXIA [None]
  - TOXIC EPIDERMAL NECROLYSIS [None]
  - URTICARIA [None]
  - PRURITUS [None]
  - HEART RATE INCREASED [None]
  - LEUKOPENIA [None]
  - LYMPHOPENIA [None]
  - STAPHYLOCOCCUS TEST POSITIVE [None]
  - SKIN EXFOLIATION [None]
  - STEVENS-JOHNSON SYNDROME [None]
  - NIKOLSKY'S SIGN [None]
  - CARDIO-RESPIRATORY ARREST [None]
